FAERS Safety Report 7328614-X (Version None)
Quarter: 2011Q1

REPORT INFORMATION
  Report Type: 
  Country: None (occurrence: None)
  Receive Date: 20110225
  Receipt Date: 20110225
  Transmission Date: 20110831
  Serious: Yes (Disabling)
  Sender: FDA-Public Use
  Company Number: None

PATIENT
  Age: 43 Year
  Sex: Female
  Weight: 53.5244 kg

DRUGS (1)
  1. REMICADE [Suspect]
     Indication: CROHN'S DISEASE
     Dosage: EVERY 7 WEEKS IV
     Route: 042

REACTIONS (3)
  - NO THERAPEUTIC RESPONSE [None]
  - ALOPECIA [None]
  - SERUM SICKNESS [None]
